FAERS Safety Report 18959437 (Version 2)
Quarter: 2022Q3

REPORT INFORMATION
  Report Type: Spontaneous
  Country: GB (occurrence: GB)
  Receive Date: 20210302
  Receipt Date: 20220708
  Transmission Date: 20221026
  Serious: Yes (Other)
  Sender: FDA-Public Use
  Company Number: GB-GLAXOSMITHKLINE-GBCH2021001942

PATIENT

DRUGS (1)
  1. ACETAMINOPHEN\ASPIRIN\CAFFEINE\IBUPROFEN\QUININE SULFATE [Suspect]
     Active Substance: ACETAMINOPHEN\ASPIRIN\CAFFEINE\IBUPROFEN\QUININE SULFATE
     Indication: Product used for unknown indication

REACTIONS (1)
  - Dependence [Unknown]
